FAERS Safety Report 4945359-1 (Version None)
Quarter: 2006Q1

REPORT INFORMATION
  Report Type: 
  Country: None (occurrence: None)
  Receive Date: 20060315
  Receipt Date: 20060315
  Transmission Date: 20060701
  Serious: Yes (Life-Threatening, Hospitalization)
  Sender: FDA-Public Use
  Company Number: None

PATIENT
  Age: 78 Year
  Sex: Male
  Weight: 61 kg

DRUGS (2)
  1. TIMOLOL MALEATE [Suspect]
     Indication: GLAUCOMA
     Dosage: 1 GTTS OU BID
     Route: 047
     Dates: start: 19971205
  2. PILOCARPINE [Suspect]
     Indication: GLAUCOMA
     Dosage: 1 GTTS OU  BID
     Route: 047
     Dates: start: 19971205

REACTIONS (1)
  - BRADYCARDIA [None]
